FAERS Safety Report 7249098-6 (Version None)
Quarter: 2011Q1

REPORT INFORMATION
  Report Type: 
  Country: None (occurrence: None)
  Receive Date: 20110128
  Receipt Date: 20101026
  Transmission Date: 20110831
  Serious: Yes (Other)
  Sender: FDA-Public Use
  Company Number: US-BAYER-201024694NA

PATIENT
  Sex: Female
  Weight: 56.818 kg

DRUGS (9)
  1. YASMIN [Suspect]
     Indication: ABDOMINAL PAIN
     Route: 048
     Dates: start: 20050101, end: 20100101
  2. NAPROSYN [Concomitant]
  3. YAZ [Suspect]
     Indication: PRODUCT USED FOR UNKNOWN INDICATION
     Route: 048
  4. LEVSIN [Concomitant]
  5. VICODIN [Concomitant]
  6. BENTYL [Concomitant]
  7. ULTRAM [Concomitant]
  8. YASMIN [Suspect]
  9. OCELLA [Suspect]
     Indication: MENSTRUAL DISORDER
     Route: 048

REACTIONS (4)
  - ABDOMINAL PAIN [None]
  - BILIARY DYSKINESIA [None]
  - CHOLECYSTITIS CHRONIC [None]
  - BILIARY COLIC [None]
